FAERS Safety Report 9890044 (Version 1)
Quarter: 2014Q1

REPORT INFORMATION
  Report Type: Spontaneous
  Country: US (occurrence: US)
  Receive Date: 20140212
  Receipt Date: 20140212
  Transmission Date: 20141002
  Serious: No
  Sender: FDA-Public Use
  Company Number: US-BIOGENIDEC-2014BI010996

PATIENT
  Age: 42 Year
  Sex: Female

DRUGS (4)
  1. TECFIDERA [Suspect]
     Indication: PRODUCT USED FOR UNKNOWN INDICATION
     Route: 048
     Dates: start: 201312
  2. CALCIUM +VITAMIN D [Concomitant]
  3. VITAMIN B COMPLEX [Concomitant]
  4. IBUPROFEN [Concomitant]

REACTIONS (7)
  - Headache [Unknown]
  - Chills [Unknown]
  - Pyrexia [Unknown]
  - Pain [Unknown]
  - Influenza like illness [Unknown]
  - Abdominal discomfort [Unknown]
  - Nausea [Unknown]
